FAERS Safety Report 5534088-1 (Version None)
Quarter: 2007Q4

REPORT INFORMATION
  Report Type: 
  Country: None (occurrence: None)
  Receive Date: 20071129
  Receipt Date: 20071129
  Transmission Date: 20080405
  Serious: No
  Sender: FDA-Public Use
  Company Number: None

PATIENT
  Age: 31 Year
  Sex: Male

DRUGS (8)
  1. NASONEX [Suspect]
     Indication: RHINITIS ALLERGIC
     Dosage: 2 SPRAYS EACH NOSTRIL TWICE DAILY NASAL
     Route: 045
     Dates: start: 20050101, end: 20070101
  2. ALBUTEROL [Concomitant]
  3. IBUPROFEN [Concomitant]
  4. MULTI-VITAMIN [Concomitant]
  5. LORTAB [Concomitant]
  6. LORAZEPAM [Concomitant]
  7. SYNTHROID [Concomitant]
  8. PRILOSEC [Concomitant]

REACTIONS (1)
  - FUNGAL OESOPHAGITIS [None]
